FAERS Safety Report 17664839 (Version 3)
Quarter: 2020Q3

REPORT INFORMATION
  Report Type: Spontaneous
  Country: US (occurrence: US)
  Receive Date: 20200414
  Receipt Date: 20200902
  Transmission Date: 20201102
  Serious: Yes (Other)
  Sender: FDA-Public Use
  Company Number: US-PFIZER INC-2020029952

PATIENT
  Age: 60 Year
  Sex: Female

DRUGS (2)
  1. XELJANZ XR [Suspect]
     Active Substance: TOFACITINIB CITRATE
     Indication: RHEUMATOID ARTHRITIS
     Dosage: 11 MG, 1X/DAY
     Route: 048
     Dates: start: 201910, end: 20200720
  2. LOSARTAN. [Concomitant]
     Active Substance: LOSARTAN
     Dosage: UNK

REACTIONS (13)
  - Therapeutic product effect incomplete [Not Recovered/Not Resolved]
  - Ulcer [Unknown]
  - Fall [Unknown]
  - Diverticulitis [Unknown]
  - Blood pressure increased [Unknown]
  - Hypoaesthesia [Unknown]
  - Patella fracture [Unknown]
  - Product dose omission issue [Unknown]
  - Paraesthesia [Unknown]
  - Pneumonia [Recovered/Resolved]
  - Barrett^s oesophagus [Unknown]
  - Hernia [Unknown]
  - Nodule [Unknown]

NARRATIVE: CASE EVENT DATE: 202002
